FAERS Safety Report 25570903 (Version 2)
Quarter: 2025Q3

REPORT INFORMATION
  Report Type: Spontaneous
  Country: IN (occurrence: IN)
  Receive Date: 20250717
  Receipt Date: 20250729
  Transmission Date: 20251021
  Serious: Yes (Hospitalization, Other)
  Sender: ALKEM
  Company Number: None

PATIENT
  Age: 96 Year
  Sex: Male

DRUGS (32)
  1. QUETIAPINE FUMARATE [Suspect]
     Active Substance: QUETIAPINE FUMARATE
     Indication: Hallucination, visual
     Dosage: 50 MILLIGRAM, QD
     Route: 065
     Dates: start: 202311
  2. QUETIAPINE FUMARATE [Suspect]
     Active Substance: QUETIAPINE FUMARATE
     Indication: Speech disorder
     Dosage: 75 MILLIGRAM, QD
     Route: 065
     Dates: start: 202311
  3. QUETIAPINE FUMARATE [Suspect]
     Active Substance: QUETIAPINE FUMARATE
     Indication: Insomnia
     Dosage: 100 MILLIGRAM, QD
     Route: 065
     Dates: start: 202312
  4. PREGABALIN [Interacting]
     Active Substance: PREGABALIN
     Indication: Pain in extremity
     Route: 048
     Dates: start: 2009
  5. PREGABALIN [Interacting]
     Active Substance: PREGABALIN
     Route: 065
  6. PIPERACILLIN SODIUM\TAZOBACTAM SODIUM [Suspect]
     Active Substance: PIPERACILLIN SODIUM\TAZOBACTAM SODIUM
     Indication: Urinary tract infection
     Route: 065
  7. DULOXETINE HYDROCHLORIDE [Interacting]
     Active Substance: DULOXETINE HYDROCHLORIDE
     Indication: Peripheral coldness
     Route: 065
     Dates: start: 202308
  8. DULOXETINE HYDROCHLORIDE [Interacting]
     Active Substance: DULOXETINE HYDROCHLORIDE
     Route: 065
  9. RASAGILINE MESYLATE [Suspect]
     Active Substance: RASAGILINE MESYLATE
     Indication: Decreased gait velocity
     Dosage: 1 MILLIGRAM, QD
     Route: 065
     Dates: start: 202311
  10. RASAGILINE MESYLATE [Suspect]
     Active Substance: RASAGILINE MESYLATE
     Indication: Speech disorder
  11. RASAGILINE MESYLATE [Suspect]
     Active Substance: RASAGILINE MESYLATE
     Indication: Tremor
  12. TRIHEXYPHENIDYL [Suspect]
     Active Substance: TRIHEXYPHENIDYL
     Indication: Tremor
     Dosage: 2 MILLIGRAM, QD
     Route: 065
     Dates: start: 202311
  13. TRIHEXYPHENIDYL [Suspect]
     Active Substance: TRIHEXYPHENIDYL
     Indication: Decreased gait velocity
  14. TRIHEXYPHENIDYL [Suspect]
     Active Substance: TRIHEXYPHENIDYL
     Indication: Speech disorder
  15. Budesonide, Salbutamol [Concomitant]
     Indication: Peripheral coldness
     Route: 045
     Dates: start: 2009
  16. CEFTAZIDIME [Concomitant]
     Active Substance: CEFTAZIDIME
     Indication: Urinary tract infection
     Route: 065
  17. DONEPEZIL [Concomitant]
     Active Substance: DONEPEZIL
     Indication: Hallucination, visual
     Dosage: 10 MILLIGRAM, QD
     Route: 065
     Dates: start: 202311
  18. DONEPEZIL [Concomitant]
     Active Substance: DONEPEZIL
     Indication: Speech disorder
  19. DONEPEZIL [Concomitant]
     Active Substance: DONEPEZIL
     Indication: Insomnia
  20. Dutasteride, Tamsulosin [Concomitant]
     Indication: Product used for unknown indication
     Route: 065
     Dates: start: 2023
  21. LINAGLIPTIN [Concomitant]
     Active Substance: LINAGLIPTIN
     Indication: Product used for unknown indication
     Route: 065
     Dates: start: 2023
  22. LINEZOLID [Concomitant]
     Active Substance: LINEZOLID
     Indication: Urinary tract infection
     Route: 065
  23. MELATONIN [Concomitant]
     Active Substance: MELATONIN
     Indication: Neuropsychological symptoms
     Dosage: 5 MILLIGRAM, QD
     Route: 048
     Dates: start: 202311
  24. MELATONIN [Concomitant]
     Active Substance: MELATONIN
     Indication: Condition aggravated
  25. MELATONIN [Concomitant]
     Active Substance: MELATONIN
     Indication: Insomnia
  26. MEMANTINE [Concomitant]
     Active Substance: MEMANTINE
     Indication: Product used for unknown indication
     Dosage: 5 MILLIGRAM, QD
     Route: 065
     Dates: start: 202311
  27. MEMANTINE [Concomitant]
     Active Substance: MEMANTINE
     Dosage: 10 MILLIGRAM, QD (MID)
     Route: 065
     Dates: start: 202311
  28. ACETAMINOPHEN [Concomitant]
     Active Substance: ACETAMINOPHEN
     Indication: Pyrexia
     Route: 065
  29. REBAMIPIDE [Concomitant]
     Active Substance: REBAMIPIDE
     Indication: Mouth ulceration
     Route: 048
  30. RISPERIDONE [Concomitant]
     Active Substance: RISPERIDONE
     Indication: Product used for unknown indication
     Route: 065
     Dates: start: 202312
  31. RIVASTIGMINE [Concomitant]
     Active Substance: RIVASTIGMINE
     Indication: Product used for unknown indication
     Dosage: 3 MILLIGRAM, QD
     Route: 065
  32. Spironolactone, Torasemide [Concomitant]
     Indication: Oedema peripheral
     Route: 065
     Dates: start: 2022

REACTIONS (13)
  - Aphthous ulcer [Recovered/Resolved]
  - Delirium [Recovering/Resolving]
  - Dry mouth [Unknown]
  - Neuropsychological symptoms [Recovered/Resolved]
  - Drug use disorder [Unknown]
  - Hallucination, visual [Recovered/Resolved]
  - Decreased gait velocity [Recovering/Resolving]
  - Speech disorder [Recovering/Resolving]
  - Tremor [Recovering/Resolving]
  - Extrapyramidal disorder [Recovering/Resolving]
  - Drug interaction [Unknown]
  - Insomnia [Recovered/Resolved]
  - Therapy partial responder [Unknown]

NARRATIVE: CASE EVENT DATE: 20240101
